FAERS Safety Report 8778722 (Version 3)
Quarter: 2012Q4

REPORT INFORMATION
  Report Type: 
  Country: US (occurrence: US)
  Receive Date: 20120912
  Receipt Date: 20121211
  Transmission Date: 20130627
  Serious: Yes (Death, Hospitalization, Other)
  Sender: FDA-Public Use
  Company Number: US-PFIZER INC-2012222549

PATIENT
  Age: 60 Year
  Sex: Female

DRUGS (3)
  1. SUTENT [Suspect]
     Indication: ACUTE MYELOBLASTIC LEUKEMIA
     Dosage: 50 mg, 1x/day
     Route: 048
     Dates: start: 2012, end: 20120825
  2. HYDREA [Suspect]
     Dosage: 1 g, 3x/day
     Route: 048
  3. SORAFENIB TOSILATE [Suspect]
     Dosage: 400 mg, 2x/day
     Route: 048

REACTIONS (8)
  - Disease progression [Fatal]
  - Acute myeloid leukaemia [Fatal]
  - Pleural effusion [Unknown]
  - Pyoderma gangrenosum [Unknown]
  - Pyrexia [Unknown]
  - Off label use [Unknown]
  - Oropharyngeal pain [Unknown]
  - Ear pain [Unknown]
